FAERS Safety Report 8459298 (Version 2)
Quarter: 2012Q4

REPORT INFORMATION
  Report Type: Spontaneous
  Country: US (occurrence: None)
  Receive Date: 20120301
  Receipt Date: 20120913
  Transmission Date: 20130627
  Serious: Yes (Death)
  Sender: FDA-Public Use
  Company Number: 2012031401

PATIENT
  Age: 90 Year
  Sex: Female
  Weight: 58.97 kg

DRUGS (15)
  1. HIZENTRA [Suspect]
     Indication: IMMUNODEFICIENCY COMMON VARIABLE
     Dosage: (7 g 1x/week, 1 gm (5 mL) on 2-3 sites for 1-2 hours Subcutaneous)
     Route: 058
  2. HIZENTRA [Suspect]
     Indication: IMMUNODEFICIENCY COMMON VARIABLE
     Dosage: (7 g 1x/week, 2 gm (10 mL) on 2-3 sites over 1-2 hours Subcutaneous)
     Route: 058
  3. HIZENTRA [Suspect]
     Indication: IMMUNODEFICIENCY COMMON VARIABLE
     Dosage: (7 g 1x/week, 4 gm (20 mL) Subcutaneous)
     Route: 058
  4. DIGOXIN (DIGOXIN) [Suspect]
  5. ALBUTEROL (SALBUTAMOL) [Suspect]
  6. LASIX (FUROSEMIDE) [Concomitant]
  7. METOPROLOL (METOPROLOL) [Concomitant]
  8. KLOR-CON (POTASSIUM CHLORIDE) [Concomitant]
  9. PACERONE (AMIODARONE HYDROCHLORIDE) [Concomitant]
  10. ASPIRIN (ACETYSALICYLIC ACID) [Concomitant]
  11. PACERONE (AMIODARONE HYDROCHORIDE) [Concomitant]
  12. LISINOPRIL (LISINOPRIL) [Concomitant]
  13. LISINOPRIL [Concomitant]
  14. MULTIVITAMIN (MULTIVITAMIN /00831701/) [Concomitant]
  15. OMEPRAZOLE [Concomitant]

REACTIONS (1)
  - Death [None]
